FAERS Safety Report 9520097 (Version 1)
Quarter: 2013Q1

REPORT INFORMATION
  Report Type: Spontaneous
  Country: US (occurrence: None)
  Receive Date: 20130305
  Receipt Date: 20130305
  Transmission Date: 20140127
  Serious: Yes (Hospitalization, Other)
  Sender: FDA-Public Use
  Company Number: 163-21880-12072407

PATIENT
  Age: 82 Year
  Sex: Male
  Weight: 79.2 kg

DRUGS (10)
  1. REVLIMID (LENALIDOMIDE) (15 MILLIGRAM, CAPSULES) [Suspect]
     Indication: LYMPHOMA
     Dosage: 21 IN 28 D
     Route: 048
     Dates: start: 20120713
  2. PRADAXA (DABIGTRAN ETEXILATE MESILATE) [Concomitant]
  3. ASPIRIN (ACETYLSALICYLIC ACID) [Concomitant]
  4. CALCIUM (CALCIUM) [Concomitant]
  5. CARDIZEM (DILTIAZEM HYDROCHLORIDE) [Concomitant]
  6. FERREX (POLYSACCHARIDE-IRON COMPLEX) [Concomitant]
  7. FLOMAX (TAMSULOSIN HYDROCHLORIDE) [Concomitant]
  8. LASIX (FUROSEMIDE) [Concomitant]
  9. METOPROLOL (METOPROLOL) [Concomitant]
  10. VITAMINS [Concomitant]

REACTIONS (7)
  - Asthenia [None]
  - Drug intolerance [None]
  - Exfoliative rash [None]
  - Diarrhoea [None]
  - Fatigue [None]
  - Lacrimation increased [None]
  - Constipation [None]
